FAERS Safety Report 14943359 (Version 1)
Quarter: 2018Q2

REPORT INFORMATION
  Report Type: Spontaneous
  Country: US (occurrence: US)
  Receive Date: 20180528
  Receipt Date: 20180528
  Transmission Date: 20180711
  Serious: No
  Sender: FDA-Public Use
  Company Number: US-JNJFOC-20180512133

PATIENT
  Age: 62 Year
  Sex: Female
  Weight: 58.97 kg

DRUGS (1)
  1. TYLENOL EXTRA STRENGTH [Suspect]
     Active Substance: ACETAMINOPHEN
     Indication: SCIATICA
     Route: 048

REACTIONS (4)
  - Product use in unapproved indication [Unknown]
  - Product solubility abnormal [Unknown]
  - Off label use [Unknown]
  - Medication residue present [Unknown]
